FAERS Safety Report 8436022-3 (Version None)
Quarter: 2012Q2

REPORT INFORMATION
  Report Type: 
  Country: None (occurrence: None)
  Receive Date: 20120607
  Receipt Date: 20120607
  Transmission Date: 20120825
  Serious: Yes (Other)
  Sender: FDA-Public Use
  Company Number: None

PATIENT
  Sex: Male
  Weight: 83.9154 kg

DRUGS (1)
  1. PROSCAR [Suspect]
     Indication: BENIGN PROSTATIC HYPERPLASIA
     Dosage: 1 TAB DAILY PO
     Route: 048
     Dates: start: 20020206, end: 20120507

REACTIONS (3)
  - ERECTILE DYSFUNCTION [None]
  - MUSCLE ATROPHY [None]
  - FATIGUE [None]
